FAERS Safety Report 18618536 (Version 1)
Quarter: 2020Q4

REPORT INFORMATION
  Report Type: Spontaneous
  Country: US (occurrence: US)
  Receive Date: 20201215
  Receipt Date: 20201215
  Transmission Date: 20210114
  Serious: No
  Sender: FDA-Public Use
  Company Number: US-JNJFOC-20201144709

PATIENT
  Age: 4 Decade
  Sex: Female
  Weight: 77.18 kg

DRUGS (1)
  1. WOMENS ROGAINE UNSCENTED [Suspect]
     Active Substance: MINOXIDIL
     Indication: ALOPECIA
     Dosage: ABOUT LESS THAN THE RECOMMENDED. TWICE A DAY, ONE IN THE MORNING AND ONE IN THE EVENING
     Route: 061
     Dates: start: 202009, end: 202009

REACTIONS (5)
  - Underdose [Unknown]
  - Application site pain [Recovered/Resolved]
  - Application site erythema [Recovered/Resolved]
  - Inappropriate schedule of product administration [Unknown]
  - Hyperaesthesia [Recovered/Resolved]

NARRATIVE: CASE EVENT DATE: 202009
